FAERS Safety Report 4949911-9 (Version None)
Quarter: 2006Q1

REPORT INFORMATION
  Report Type: 
  Country: None (occurrence: None)
  Receive Date: 20060315
  Receipt Date: 20060228
  Transmission Date: 20060701
  Serious: Yes (Other)
  Sender: FDA-Public Use
  Company Number: 2006S1001781

PATIENT
  Age: 37 Year
  Sex: Female
  Weight: 72.5755 kg

DRUGS (12)
  1. EQUETRO [Suspect]
     Indication: BIPOLAR DISORDER
     Dosage: 200 MG;BID;ORAL
     Route: 048
     Dates: start: 20051101, end: 20060129
  2. VERAPAMIL HCL [Suspect]
     Dosage: QD;PO
     Route: 048
     Dates: start: 20060114, end: 20060128
  3. NITROFURANTOIN MONOHYDRATE/MACROCRYSTALS [Suspect]
     Indication: DYSURIA
     Dosage: 100 MG;BID;ORAL
     Route: 048
     Dates: start: 20060116, end: 20060210
  4. AMLODIPINE BESYLATE [Concomitant]
  5. OMEPRAZOLE [Concomitant]
  6. ZOLPIDEM TARTRATE [Concomitant]
  7. DULOXETINE HYDROCHLORIDE [Concomitant]
  8. LORAZEPAM [Concomitant]
  9. AMLODIPINE/BENAZEPRIL HYDROCHLORIDE [Concomitant]
  10. DIPHENYLPYRALINE HYDROCHLORIDE/PHENYLPROPANOLAMINE HYDROCHLORIDE [Suspect]
  11. VALPROATE SODIUM [Concomitant]
  12. ACETYLSALICYLIC ACID/CAFFEINE/PARACETAMOL [Concomitant]

REACTIONS (15)
  - ANXIETY [None]
  - BACK PAIN [None]
  - BLOOD PRESSURE INCREASED [None]
  - CHEST PAIN [None]
  - DRUG EFFECT DECREASED [None]
  - DYSPNOEA [None]
  - GROIN PAIN [None]
  - HEADACHE [None]
  - HEPATITIS [None]
  - HEPATITIS C ANTIBODY POSITIVE [None]
  - INSOMNIA [None]
  - PAIN IN EXTREMITY [None]
  - PAIN IN JAW [None]
  - PRURITUS [None]
  - RENAL DISORDER [None]
